FAERS Safety Report 5035449-X (Version None)
Quarter: 2006Q2

REPORT INFORMATION
  Report Type: 
  Country: None (occurrence: None)
  Receive Date: 20060622
  Receipt Date: 20060531
  Transmission Date: 20061013
  Serious: Yes (Other)
  Sender: FDA-Public Use
  Company Number: 2006RR-02579

PATIENT
  Age: 36 Year
  Sex: Male

DRUGS (1)
  1. DOXYCYCLINE [Suspect]
     Dosage: ORAL
     Route: 048

REACTIONS (6)
  - BONE MARROW FAILURE [None]
  - CARDIOTOXICITY [None]
  - HEPATOTOXICITY [None]
  - NEUROTOXICITY [None]
  - POISONING [None]
  - SKIN HYPERPIGMENTATION [None]
